FAERS Safety Report 21211777 (Version 1)
Quarter: 2022Q3

REPORT INFORMATION
  Report Type: Spontaneous
  Country: US (occurrence: US)
  Receive Date: 20220815
  Receipt Date: 20220815
  Transmission Date: 20221027
  Serious: Yes (Other)
  Sender: FDA-Public Use
  Company Number: US-BAYER-2022A111718

PATIENT
  Age: 74 Year
  Sex: Male
  Weight: 84 kg

DRUGS (17)
  1. XARELTO [Interacting]
     Active Substance: RIVAROXABAN
     Dosage: UNK
  2. ASPIRIN [Interacting]
     Active Substance: ASPIRIN
     Dosage: UNK
  3. ALBUTEROL SULFATE [Concomitant]
     Active Substance: ALBUTEROL SULFATE
  4. AMLODIPINE [Concomitant]
     Active Substance: AMLODIPINE BESYLATE
  5. CARVEDILOL [Concomitant]
     Active Substance: CARVEDILOL
  6. SACUBITRIL [Concomitant]
     Active Substance: SACUBITRIL
  7. VALSARTAN [Concomitant]
     Active Substance: VALSARTAN
  8. FOLIC ACID [Concomitant]
     Active Substance: FOLIC ACID
  9. FUROSEMIDE [Concomitant]
     Active Substance: FUROSEMIDE
  10. PITAVASTATIN [Concomitant]
     Active Substance: PITAVASTATIN
  11. MAGNESIUM [Concomitant]
     Active Substance: MAGNESIUM
  12. MONTELUKAST [Concomitant]
     Active Substance: MONTELUKAST SODIUM
  13. ESOMEPRAZOLE [Concomitant]
     Active Substance: ESOMEPRAZOLE
  14. TIOTROPIUM [Concomitant]
     Active Substance: TIOTROPIUM
  15. ZINC BROMIDE [Concomitant]
     Active Substance: ZINC BROMIDE
  16. BUDESONIDE [Concomitant]
     Active Substance: BUDESONIDE
  17. FORMOTEROL [Concomitant]
     Active Substance: FORMOTEROL

REACTIONS (2)
  - Haemoptysis [None]
  - Labelled drug-drug interaction medication error [None]
